FAERS Safety Report 10811415 (Version 1)
Quarter: 2015Q1

REPORT INFORMATION
  Report Type: Report from Study
  Country: US (occurrence: US)
  Receive Date: 20150217
  Receipt Date: 20150217
  Transmission Date: 20150721
  Serious: No
  Sender: FDA-Public Use
  Company Number: US-ABBVIE-14K-163-1209683-00

PATIENT
  Age: 52 Year
  Sex: Female

DRUGS (3)
  1. PREDNISONE. [Concomitant]
     Active Substance: PREDNISONE
     Indication: PRODUCT USED FOR UNKNOWN INDICATION
  2. HUMIRA [Suspect]
     Active Substance: ADALIMUMAB
     Indication: RHEUMATOID ARTHRITIS
     Route: 058
     Dates: start: 20140206
  3. TRAMADOL [Concomitant]
     Active Substance: TRAMADOL
     Indication: PRODUCT USED FOR UNKNOWN INDICATION

REACTIONS (2)
  - Back pain [Not Recovered/Not Resolved]
  - Pain in extremity [Not Recovered/Not Resolved]

NARRATIVE: CASE EVENT DATE: 20140206
